FAERS Safety Report 6918189-9 (Version None)
Quarter: 2010Q3

REPORT INFORMATION
  Report Type: 
  Country: None (occurrence: None)
  Receive Date: 20100806
  Receipt Date: 20100722
  Transmission Date: 20110219
  Serious: Yes (Hospitalization)
  Sender: FDA-Public Use
  Company Number: 2010003048

PATIENT
  Sex: Female

DRUGS (2)
  1. ERLOTINIB HYDROCHLORIDE [Suspect]
     Indication: ADENOCARCINOMA PANCREAS
     Dosage: 100 MG, QD, ORAL
     Route: 048
     Dates: start: 20100401
  2. GEMCITABINE [Suspect]
     Dosage: 1000 MG/M2, DAYS 1, 8, 15, INTRAVENOUS
     Route: 042
     Dates: start: 20100401

REACTIONS (3)
  - HAEMOGLOBIN DECREASED [None]
  - INFECTION [None]
  - KLEBSIELLA TEST POSITIVE [None]
